FAERS Safety Report 8922719 (Version 1)
Quarter: 2012Q4

REPORT INFORMATION
  Report Type: Spontaneous
  Country: US (occurrence: None)
  Receive Date: 20121115
  Receipt Date: 20121115
  Transmission Date: 20130627
  Serious: Yes (Death)
  Sender: FDA-Public Use
  Company Number: 2012-567

PATIENT
  Age: 88 Year
  Sex: Male

DRUGS (14)
  1. FAZACLO [Suspect]
     Route: 048
     Dates: start: 20120605, end: 20120923
  2. LEVOTHYROXINE [Concomitant]
  3. CLOPIDOGREL BISULFATE [Concomitant]
  4. PANTOPRAZOLE SODIUM [Concomitant]
  5. OXCARBAZEPINE [Concomitant]
  6. ESCITALOPRAM OXALATE [Concomitant]
  7. HALOPERIDOL [Concomitant]
  8. CLOTRIMAZOLE W/BETAMETHASONE DIPROPIONAL [Concomitant]
  9. MEDROXYPROGESTERONE ACETATE [Concomitant]
  10. CALMOSEPTINE [Concomitant]
  11. MULTIVITAMINS WITH MINERALS [Concomitant]
  12. ACETAMINOPHEN [Concomitant]
  13. MORPHINE SULFATE [Concomitant]
  14. LORAZEPAM [Concomitant]

REACTIONS (1)
  - Death [None]
